FAERS Safety Report 8559140-8 (Version None)
Quarter: 2012Q3

REPORT INFORMATION
  Report Type: 
  Country: None (occurrence: None)
  Receive Date: 20120802
  Receipt Date: 20120726
  Transmission Date: 20120928
  Serious: No
  Sender: FDA-Public Use
  Company Number: US-BIOGENIDEC-2012BI028132

PATIENT
  Sex: Male

DRUGS (3)
  1. AVONEX [Suspect]
     Route: 030
     Dates: start: 20070913, end: 20080901
  2. AVONEX [Suspect]
     Indication: MULTIPLE SCLEROSIS
     Route: 030
     Dates: start: 20040424, end: 20050218
  3. AVONEX [Suspect]
     Route: 030
     Dates: start: 20070223, end: 20070620

REACTIONS (4)
  - INJECTION SITE PAIN [None]
  - DYSKINESIA [None]
  - INFLUENZA LIKE ILLNESS [None]
  - NECK PAIN [None]
